FAERS Safety Report 21911884 (Version 1)
Quarter: 2023Q1

REPORT INFORMATION
  Report Type: Spontaneous
  Country: US (occurrence: US)
  Receive Date: 20230125
  Receipt Date: 20230125
  Transmission Date: 20230418
  Serious: No
  Sender: FDA-Public Use
  Company Number: US-GE HEALTHCARE-2022CSU008605

PATIENT
  Age: 61 Year
  Sex: Female
  Weight: 117.9 kg

DRUGS (2)
  1. OMNIPAQUE [Suspect]
     Active Substance: IOHEXOL
     Indication: Computerised tomogram
     Dosage: 150 ML, SINGLE
     Route: 042
     Dates: start: 20221125, end: 20221125
  2. OMNIPAQUE [Suspect]
     Active Substance: IOHEXOL
     Indication: Adrenal mass

REACTIONS (2)
  - Urticaria [Unknown]
  - Pruritus [Unknown]

NARRATIVE: CASE EVENT DATE: 20221125
